FAERS Safety Report 15190440 (Version 1)
Quarter: 2018Q3

REPORT INFORMATION
  Report Type: Spontaneous
  Country: GB (occurrence: GB)
  Receive Date: 20180724
  Receipt Date: 20180724
  Transmission Date: 20181010
  Serious: Yes (Other)
  Sender: FDA-Public Use
  Company Number: GB-PFIZER INC-2018292825

PATIENT
  Age: 54 Year
  Sex: Female
  Weight: 165 kg

DRUGS (7)
  1. DOXYCYCLINE MONOHYDRATE [Suspect]
     Active Substance: DOXYCYCLINE
     Dosage: UNK
     Dates: start: 20180619
  2. FUSIDIC ACID [Concomitant]
     Active Substance: FUSIDIC ACID
     Dosage: 3 DF, 1X/DAY
     Dates: start: 20180430, end: 20180507
  3. ALLOPURINOL. [Concomitant]
     Active Substance: ALLOPURINOL
     Dosage: 2 DF, 1X/DAY
     Dates: start: 20170505
  4. VALSARTAN. [Concomitant]
     Active Substance: VALSARTAN
     Dosage: 1 DF, 1X/DAY
     Dates: start: 20170505
  5. SERTRALINE [Concomitant]
     Active Substance: SERTRALINE HYDROCHLORIDE
     Dosage: 1 DF, 1X/DAY
     Dates: start: 20170505
  6. SIMVASTATIN. [Concomitant]
     Active Substance: SIMVASTATIN
     Dosage: 2 DF, 1X/DAY (AT NIGHT)
     Dates: start: 20170505
  7. ATENOLOL. [Concomitant]
     Active Substance: ATENOLOL
     Dosage: 1 DF, 1X/DAY (EACH MORNING)
     Dates: start: 20170505

REACTIONS (2)
  - Malaise [Unknown]
  - Rash macular [Recovered/Resolved]

NARRATIVE: CASE EVENT DATE: 20180619
